FAERS Safety Report 12315920 (Version 2)
Quarter: 2017Q1

REPORT INFORMATION
  Report Type: Report from Study
  Country: None (occurrence: FR)
  Receive Date: 20160428
  Receipt Date: 20170330
  Transmission Date: 20170428
  Serious: Yes (Death, Hospitalization)
  Sender: FDA-Public Use
  Company Number: FR-ABBVIE-16P-056-1604637-00

PATIENT
  Sex: Male

DRUGS (1)
  1. DUODOPA [Suspect]
     Active Substance: CARBIDOPA\LEVODOPA
     Indication: PARKINSON^S DISEASE
     Dosage: AM: 7ML, ED: 1.5ML; CONT FLOW RATE DURING DAY 4.8 ML/H FROM 7:00AM-8:00PM, DAY RHYTHM: 12H
     Route: 050
     Dates: end: 2016

REACTIONS (3)
  - Death [Fatal]
  - Agitation [Unknown]
  - Device issue [Unknown]

NARRATIVE: CASE EVENT DATE: 2016
